FAERS Safety Report 20604968 (Version 1)
Quarter: 2022Q1

REPORT INFORMATION
  Report Type: Spontaneous
  Country: FR (occurrence: FR)
  Receive Date: 20220317
  Receipt Date: 20220317
  Transmission Date: 20220423
  Serious: Yes (Hospitalization)
  Sender: FDA-Public Use
  Company Number: FR-ABBVIE-22K-056-4319747-00

PATIENT
  Sex: Female

DRUGS (2)
  1. VALPROATE SODIUM [Suspect]
     Active Substance: VALPROATE SODIUM
     Indication: Epilepsy
     Route: 065
     Dates: start: 19920211, end: 19921031
  2. ORTENAL [Suspect]
     Active Substance: AMPHETAMINE SULFATE\PHENOBARBITAL
     Indication: Product used for unknown indication
     Route: 065
     Dates: start: 19920211, end: 19921031

REACTIONS (4)
  - Foetal heart rate disorder [Unknown]
  - Intermenstrual bleeding [Unknown]
  - Maternal exposure during pregnancy [Unknown]
  - Live birth [Unknown]
